FAERS Safety Report 9723626 (Version 1)
Quarter: 2013Q4

REPORT INFORMATION
  Report Type: Spontaneous
  Country: US (occurrence: US)
  Receive Date: 20131202
  Receipt Date: 20131202
  Transmission Date: 20140711
  Serious: Yes (Other)
  Sender: FDA-Public Use
  Company Number: US-ASTRAZENECA-2013SE86234

PATIENT
  Age: 392 Day
  Sex: Male

DRUGS (11)
  1. SYNAGIS [Suspect]
     Route: 030
     Dates: start: 20131119
  2. BUDESONIDE [Concomitant]
  3. CALCIPOTRIL [Concomitant]
  4. FUROSEMIDE [Concomitant]
  5. ASPIRIN [Concomitant]
  6. CHOLECALCIFEROLE [Concomitant]
  7. ERYTHROMYCIN [Concomitant]
  8. FERROUS SULFATE [Concomitant]
  9. LANSOPRAZOLE [Concomitant]
  10. LEVOBUTEROL [Concomitant]
  11. MAGNESIUM GLUCONATE [Concomitant]

REACTIONS (1)
  - Convulsion [Recovered/Resolved]
